FAERS Safety Report 5762370-1 (Version None)
Quarter: 2008Q2

REPORT INFORMATION
  Report Type: 
  Country: None (occurrence: None)
  Receive Date: 20080609
  Receipt Date: 20080529
  Transmission Date: 20081010
  Serious: Yes (Hospitalization)
  Sender: FDA-Public Use
  Company Number: US-ROCHE-567397

PATIENT
  Sex: Female

DRUGS (4)
  1. PEG-INTERFERON A-2A (RO 25-8310) [Suspect]
     Dosage: FORM: PRE-FILLED SYRINGE (PFS)
     Route: 065
     Dates: start: 20080228
  2. RIBAVIRIN [Suspect]
     Dosage: DOSE: 400 MG IN AM/ 600 MG PM
     Route: 065
     Dates: start: 20080228
  3. NEUPOGEN [Concomitant]
  4. ATIVAN [Concomitant]

REACTIONS (2)
  - HEADACHE [None]
  - THROMBOSIS [None]
